FAERS Safety Report 12225915 (Version 1)
Quarter: 2016Q1

REPORT INFORMATION
  Report Type: Spontaneous
  Country: US (occurrence: None)
  Receive Date: 20160330
  Receipt Date: 20160330
  Transmission Date: 20160526
  Serious: Yes (Other)
  Sender: FDA-Public Use
  Company Number: None

PATIENT
  Age: 77 Year
  Sex: Female
  Weight: 71.22 kg

DRUGS (2)
  1. UREA CREAM 39, 39 APPLY CREAM 2 TIME AUSTIN PHARMACEUTICALS [Suspect]
     Active Substance: UREA
     Indication: SKIN EXFOLIATION
     Dosage: 1OUNCE(S)  APPLIED TO A SURFACE, USUALLY THE SKIN
     Dates: start: 20160321, end: 20160321
  2. UREA CREAM 39, 39 APPLY CREAM 2 TIME AUSTIN PHARMACEUTICALS [Suspect]
     Active Substance: UREA
     Indication: DRY SKIN
     Dosage: 1OUNCE(S)  APPLIED TO A SURFACE, USUALLY THE SKIN
     Dates: start: 20160321, end: 20160321

REACTIONS (2)
  - Pain in extremity [None]
  - Pain [None]

NARRATIVE: CASE EVENT DATE: 20160321
